FAERS Safety Report 18137820 (Version 1)
Quarter: 2020Q3

REPORT INFORMATION
  Report Type: Spontaneous
  Country: CA (occurrence: CA)
  Receive Date: 20200812
  Receipt Date: 20200812
  Transmission Date: 20201103
  Serious: Yes (Disabling)
  Sender: FDA-Public Use
  Company Number: CA-TEVA-2020-CA-1812878

PATIENT
  Age: 77 Year
  Sex: Female
  Weight: 132 kg

DRUGS (5)
  1. ASA [Concomitant]
     Active Substance: ASPIRIN
     Route: 065
  2. RISEDRONATE SODIUM. [Suspect]
     Active Substance: RISEDRONATE SODIUM
     Indication: OSTEOPOROSIS
     Dosage: 1 DOSAGE FORMS DAILY;
     Route: 048
  3. CALCIUM [Concomitant]
     Active Substance: CALCIUM
     Route: 065
  4. EURO D [Concomitant]
     Route: 065
  5. QUINAPRIL. [Suspect]
     Active Substance: QUINAPRIL
     Indication: PRODUCT USED FOR UNKNOWN INDICATION
     Route: 065

REACTIONS (4)
  - Glossodynia [Recovered/Resolved]
  - Oral pain [Recovered/Resolved]
  - Gingival discomfort [Recovered/Resolved]
  - Swollen tongue [Recovered/Resolved]
